FAERS Safety Report 9778124 (Version 6)
Quarter: 2022Q4

REPORT INFORMATION
  Report Type: Spontaneous
  Country: ES (occurrence: ES)
  Receive Date: 20131223
  Receipt Date: 20221228
  Transmission Date: 20230112
  Serious: Yes (Other)
  Sender: FDA-Public Use
  Company Number: ES-RANBAXY-2013RR-76372

PATIENT
  Age: 66 Year
  Sex: Female

DRUGS (26)
  1. ATORVASTATIN [Suspect]
     Active Substance: ATORVASTATIN
     Indication: Product used for unknown indication
     Dosage: 40 MG, QD
     Route: 048
     Dates: start: 2012
  2. SIMVASTATIN [Interacting]
     Active Substance: SIMVASTATIN
     Indication: Product used for unknown indication
     Dosage: 20 MG, QD, DOSE UNIT FREQUENCY: 20 MG-MILLIGRAMS DOSE PER DOSE: 20 MG-MILLIGRAMS
     Route: 048
     Dates: start: 2012
  3. CUBICIN [Interacting]
     Active Substance: DAPTOMYCIN
     Indication: Device related infection
     Dosage: 800 MG, DAILY
     Route: 065
     Dates: start: 20130912, end: 20130924
  4. CUBICIN [Interacting]
     Active Substance: DAPTOMYCIN
     Indication: Off label use
  5. CUBICIN [Interacting]
     Active Substance: DAPTOMYCIN
     Indication: Device related infection
     Dosage: 1200 MG, BID
     Route: 065
     Dates: start: 20130524, end: 20130701
  6. CUBICIN [Interacting]
     Active Substance: DAPTOMYCIN
     Indication: Off label use
  7. CUBICIN [Interacting]
     Active Substance: DAPTOMYCIN
     Indication: Product used for unknown indication
     Dosage: 600 MILLIGRAM, BID, DOSE UNIT FREQUENCY: 1200 MG MILLIGRAMS
     Route: 065
  8. CUBICIN [Interacting]
     Active Substance: DAPTOMYCIN
     Indication: Device related infection
  9. ZOCOR [Interacting]
     Active Substance: SIMVASTATIN
     Indication: Product used for unknown indication
     Dosage: ()
     Route: 065
  10. FLURAZEPAM HYDROCHLORIDE [Concomitant]
     Active Substance: FLURAZEPAM HYDROCHLORIDE
     Indication: Product used for unknown indication
     Dosage: UNK
     Route: 065
  11. Nolotil [Concomitant]
     Indication: Product used for unknown indication
     Dosage: UNK
     Route: 048
  12. FERROUS SULFATE [Concomitant]
     Active Substance: FERROUS SULFATE
     Indication: Product used for unknown indication
     Dosage: UNK
     Route: 065
  13. POLARAMINE [Concomitant]
     Active Substance: DEXCHLORPHENIRAMINE MALEATE
     Indication: Product used for unknown indication
     Dosage: UNK
     Route: 065
  14. DULOXETINE [Concomitant]
     Active Substance: DULOXETINE
     Indication: Product used for unknown indication
     Dosage: UNK
     Route: 065
  15. Ameride [Concomitant]
     Indication: Product used for unknown indication
     Dosage: UNK
     Route: 065
  16. FOLIC ACID [Concomitant]
     Active Substance: FOLIC ACID
     Indication: Product used for unknown indication
     Dosage: UNK
     Route: 065
  17. TRAMADOL [Concomitant]
     Active Substance: TRAMADOL
     Indication: Product used for unknown indication
     Dosage: UNK
     Route: 048
  18. DICLOFENAC [Concomitant]
     Active Substance: DICLOFENAC
     Indication: Product used for unknown indication
     Dosage: UNK
     Route: 065
  19. LORAZEPAM [Concomitant]
     Active Substance: LORAZEPAM
     Indication: Product used for unknown indication
     Dosage: UNK
     Route: 065
  20. ACETAMINOPHEN [Concomitant]
     Active Substance: ACETAMINOPHEN
     Indication: Product used for unknown indication
     Dosage: UNK
     Route: 065
  21. ACETAMINOPHEN [Concomitant]
     Active Substance: ACETAMINOPHEN
     Indication: Product used for unknown indication
     Dosage: ()
     Route: 065
  22. FERROUS SULFATE [Concomitant]
     Active Substance: FERROUS SULFATE
     Indication: Product used for unknown indication
     Dosage: ()
     Route: 065
  23. AMILORIDE HYDROCHLORIDE\HYDROCHLOROTHIAZIDE [Concomitant]
     Active Substance: AMILORIDE HYDROCHLORIDE\HYDROCHLOROTHIAZIDE
     Indication: Product used for unknown indication
     Dosage: ()
     Route: 065
  24. METAMIZOLE MAGNESIUM [Concomitant]
     Active Substance: METAMIZOLE MAGNESIUM
     Indication: Product used for unknown indication
     Dosage: ()
     Route: 065
  25. ENALAPRIL [Concomitant]
     Active Substance: ENALAPRIL
     Indication: Product used for unknown indication
     Dosage: UNK
     Route: 048
  26. OMEPRAZOLE [Concomitant]
     Active Substance: OMEPRAZOLE
     Indication: Product used for unknown indication
     Dosage: 20 MILLIGRAM, DAILY,  DOSE UNIT FREQUENCY: 20 MG-MILLIGRAMS DOSE PER DOSE: 20 MG-MILLIGRAMS
     Route: 048

REACTIONS (3)
  - Myopathy [Recovered/Resolved]
  - Drug interaction [Unknown]
  - Drug interaction [Unknown]

NARRATIVE: CASE EVENT DATE: 20130627
